FAERS Safety Report 7486798-7 (Version None)
Quarter: 2011Q2

REPORT INFORMATION
  Report Type: 
  Country: None (occurrence: None)
  Receive Date: 20110517
  Receipt Date: 20110513
  Transmission Date: 20111010
  Serious: Yes (Other)
  Sender: FDA-Public Use
  Company Number: JP-PFIZER INC-2011090223

PATIENT
  Age: 50 Year
  Sex: Male

DRUGS (4)
  1. LYRICA [Suspect]
     Indication: NEURALGIA
     Dosage: 75 MG, 1X/DAY
     Route: 048
     Dates: start: 20101001, end: 20101117
  2. ALINAMIN F [Concomitant]
     Dosage: 75MG DAILY
     Route: 048
     Dates: start: 20100803
  3. LYRICA [Suspect]
     Dosage: 75 MG, 2X/DAY
     Route: 048
     Dates: start: 20101118, end: 20110101
  4. ANPLAG [Concomitant]
     Dosage: 300MG DAILY
     Route: 048
     Dates: start: 20110208, end: 20110330

REACTIONS (1)
  - HEPATIC FUNCTION ABNORMAL [None]
